FAERS Safety Report 8525341-8 (Version None)
Quarter: 2012Q3

REPORT INFORMATION
  Report Type: 
  Country: None (occurrence: None)
  Receive Date: 20120710
  Receipt Date: 20120704
  Transmission Date: 20120928
  Serious: Yes (Other)
  Sender: FDA-Public Use
  Company Number: 2012-SE-0005

PATIENT
  Age: 62 Year
  Sex: Female

DRUGS (2)
  1. CELOCURIN (SUXAMETHONIUM) : FORMULATION UNKNOWN [Suspect]
  2. FENTANYL [Suspect]
     Indication: PRODUCT USED FOR UNKNOWN INDICATION

REACTIONS (1)
  - CARDIAC ARREST [None]
